FAERS Safety Report 7950339-8 (Version None)
Quarter: 2011Q4

REPORT INFORMATION
  Report Type: 
  Country: None (occurrence: None)
  Receive Date: 20111130
  Receipt Date: 20111117
  Transmission Date: 20120403
  Serious: Yes (Other)
  Sender: FDA-Public Use
  Company Number: CA-ELI_LILLY_AND_COMPANY-CA201111005518

PATIENT
  Sex: Male

DRUGS (7)
  1. ZYPREXA [Suspect]
     Dosage: 5 MG, EACH EVENING
  2. SEROQUEL [Concomitant]
  3. ZYPREXA [Suspect]
     Indication: SCHIZOAFFECTIVE DISORDER
     Dosage: 10 MG, EACH EVENING
     Dates: start: 19990429, end: 20010716
  4. ZYPREXA [Suspect]
     Dosage: 7.5 MG, EACH EVENING
  5. DIVALPROEX SODIUM [Concomitant]
  6. ZOLOFT [Concomitant]
  7. TRAZODONE HCL [Concomitant]

REACTIONS (18)
  - TERMINAL INSOMNIA [None]
  - BRUXISM [None]
  - BLOOD TRIGLYCERIDES INCREASED [None]
  - DIABETES MELLITUS [None]
  - MUSCLE SPASMS [None]
  - TREMOR [None]
  - PLATELET COUNT DECREASED [None]
  - OROMANDIBULAR DYSTONIA [None]
  - HEPATIC STEATOSIS [None]
  - BLOOD CHOLESTEROL INCREASED [None]
  - RENAL IMPAIRMENT [None]
  - CATARACT [None]
  - POLLAKIURIA [None]
  - GRAFT VERSUS HOST DISEASE [None]
  - INFECTION [None]
  - HEPATIC ENZYME ABNORMAL [None]
  - WEIGHT INCREASED [None]
  - PAIN [None]
